FAERS Safety Report 9981536 (Version 1)
Quarter: 2014Q1

REPORT INFORMATION
  Report Type: Spontaneous
  Country: US (occurrence: None)
  Receive Date: 20140306
  Receipt Date: 20140306
  Transmission Date: 20141002
  Serious: Yes (Other)
  Sender: FDA-Public Use
  Company Number: None

PATIENT
  Sex: Female
  Weight: 45.36 kg

DRUGS (1)
  1. SPRINTEC 35 MCG-125 MG [Suspect]
     Indication: CONTRACEPTION
     Dates: start: 2003

REACTIONS (5)
  - Mood swings [None]
  - Acne [None]
  - Irritability [None]
  - Disturbance in attention [None]
  - Feeling abnormal [None]
